FAERS Safety Report 10152346 (Version 2)
Quarter: 2014Q2

REPORT INFORMATION
  Report Type: Spontaneous
  Country: US (occurrence: US)
  Receive Date: 20140505
  Receipt Date: 20140523
  Transmission Date: 20141212
  Serious: Yes (Hospitalization)
  Sender: FDA-Public Use
  Company Number: US-BAXTER-2014BAX021086

PATIENT
  Sex: Male

DRUGS (1)
  1. DIANEAL LOW CALCIUM [Suspect]
     Indication: PERITONEAL DIALYSIS
     Route: 033

REACTIONS (7)
  - Infection [Recovering/Resolving]
  - Hypersomnia [Recovering/Resolving]
  - Drug dose omission [Recovering/Resolving]
  - Pneumonia [Unknown]
  - Fungal peritonitis [Recovering/Resolving]
  - Disorientation [Unknown]
  - Dizziness [Unknown]
